FAERS Safety Report 25092354 (Version 1)
Quarter: 2025Q1

REPORT INFORMATION
  Report Type: Spontaneous
  Country: RU (occurrence: RU)
  Receive Date: 20250319
  Receipt Date: 20250319
  Transmission Date: 20250409
  Serious: Yes (Other)
  Sender: RANBAXY
  Company Number: RU-SUN PHARMACEUTICAL INDUSTRIES LTD-2025R1-498660

PATIENT
  Age: 14 Year
  Sex: Male
  Weight: 27 kg

DRUGS (11)
  1. ALENDRONATE [Suspect]
     Active Substance: ALENDRONATE SODIUM
     Indication: Pain
     Route: 065
  2. CHLOROPYRAMINE [Suspect]
     Active Substance: CHLOROPYRAMINE
     Indication: Severe myoclonic epilepsy of infancy
     Route: 042
  3. LEVETIRACETAM [Suspect]
     Active Substance: LEVETIRACETAM
     Indication: Severe myoclonic epilepsy of infancy
     Dosage: 200 MILLIGRAM, BID
     Route: 065
  4. METHYLPREDNISOLONE [Suspect]
     Active Substance: METHYLPREDNISOLONE
     Indication: Severe myoclonic epilepsy of infancy
     Dosage: 10 MILLIGRAM/KILOGRAM, DAILY
     Route: 065
  5. OMEPRAZOLE [Suspect]
     Active Substance: OMEPRAZOLE
     Indication: Prophylaxis against gastrointestinal ulcer
     Dosage: 20 MILLIGRAM, OD
     Route: 065
  6. TOPIRAMATE [Suspect]
     Active Substance: TOPIRAMATE
     Indication: Severe myoclonic epilepsy of infancy
     Dosage: 50 MILLIGRAM, OD MORNING
     Route: 065
  7. TOPIRAMATE [Suspect]
     Active Substance: TOPIRAMATE
     Dosage: 50 MILLIGRAM, OD EVENING
     Route: 065
  8. URSODIOL [Suspect]
     Active Substance: URSODIOL
     Indication: Severe myoclonic epilepsy of infancy
     Dosage: 15 MILLIGRAM/KILOGRAM, OD
     Route: 065
  9. VALPROIC ACID [Suspect]
     Active Substance: VALPROIC ACID
     Indication: Severe myoclonic epilepsy of infancy
     Dosage: 500 MILLIGRAM, BID
     Route: 065
  10. BENZOCAINE [Suspect]
     Active Substance: BENZOCAINE
     Indication: Pain
     Route: 065
  11. MAGNESIUM HYDROXIDE [Suspect]
     Active Substance: MAGNESIUM HYDROXIDE
     Indication: Pain
     Route: 065

REACTIONS (2)
  - Disease progression [Unknown]
  - Toxic epidermal necrolysis [Recovering/Resolving]
